FAERS Safety Report 21021864 (Version 1)
Quarter: 2022Q2

REPORT INFORMATION
  Report Type: Spontaneous
  Country: US (occurrence: None)
  Receive Date: 20220629
  Receipt Date: 20220629
  Transmission Date: 20220721
  Serious: No
  Sender: FDA-Public Use
  Company Number: US-ALM-HQ-US-2022-0504

PATIENT
  Sex: Female

DRUGS (1)
  1. KLISYRI [Suspect]
     Active Substance: TIRBANIBULIN

REACTIONS (1)
  - Swelling of eyelid [Unknown]
